FAERS Safety Report 8773556 (Version 2)
Quarter: 2012Q4

REPORT INFORMATION
  Report Type: 
  Country: TR (occurrence: TR)
  Receive Date: 20120907
  Receipt Date: 20120924
  Transmission Date: 20130627
  Serious: Yes (Other)
  Sender: FDA-Public Use
  Company Number: TR-GLAXOSMITHKLINE-B0828487A

PATIENT
  Age: 34 Year
  Sex: Female

DRUGS (3)
  1. PAROXETINE [Suspect]
     Indication: DEPRESSION
     Dosage: 20MG per day
     Route: 065
  2. LAMOTRIGINE [Concomitant]
     Indication: DEPRESSION
     Dosage: 200MG per day
  3. THYROXINE SODIUM [Concomitant]
     Indication: AUTOIMMUNE THYROIDITIS

REACTIONS (4)
  - Platelet function test abnormal [Recovered/Resolved]
  - Epistaxis [Unknown]
  - Conjunctival haemorrhage [Unknown]
  - Vaginal haemorrhage [Recovered/Resolved]
